FAERS Safety Report 7483218-3 (Version None)
Quarter: 2011Q2

REPORT INFORMATION
  Report Type: 
  Country: None (occurrence: None)
  Receive Date: 20110516
  Receipt Date: 20100625
  Transmission Date: 20111010
  Serious: No
  Sender: FDA-Public Use
  Company Number: US-ALLERGAN-1008375US

PATIENT
  Age: 27 Year
  Sex: Female

DRUGS (3)
  1. METFORMIN HCL [Concomitant]
     Dosage: 1000 MG, BID
  2. ZYMAR [Suspect]
     Indication: CONJUNCTIVITIS VIRAL
     Dosage: 2 GTT, QD
     Dates: start: 20100621, end: 20100621
  3. SYNTHROID [Concomitant]
     Indication: POLYCYSTIC OVARIES

REACTIONS (2)
  - HYPERSENSITIVITY [None]
  - WRONG DRUG ADMINISTERED [None]
